FAERS Safety Report 22625545 (Version 1)
Quarter: 2023Q2

REPORT INFORMATION
  Report Type: Spontaneous
  Country: KP (occurrence: KP)
  Receive Date: 20230621
  Receipt Date: 20230621
  Transmission Date: 20230721
  Serious: Yes (Death, Other)
  Sender: FDA-Public Use
  Company Number: KP-SUN PHARMACEUTICAL INDUSTRIES LTD-2023R1-395470

PATIENT
  Age: 20 Year
  Sex: Male

DRUGS (2)
  1. DOXORUBICIN [Suspect]
     Active Substance: DOXORUBICIN
     Indication: Synovial sarcoma
     Dosage: 600 MILLIGRAM/SQ. METER
     Route: 065
  2. OLARATUMAB [Concomitant]
     Active Substance: OLARATUMAB
     Indication: Synovial sarcoma
     Dosage: 240 MG/K
     Route: 065

REACTIONS (3)
  - Ischaemic stroke [Unknown]
  - Cardiomyopathy [Fatal]
  - Cardiac failure [Fatal]
